FAERS Safety Report 7691883-0 (Version None)
Quarter: 2011Q3

REPORT INFORMATION
  Report Type: 
  Country: None (occurrence: None)
  Receive Date: 20110818
  Receipt Date: 20110808
  Transmission Date: 20111222
  Serious: Yes (Other)
  Sender: FDA-Public Use
  Company Number: US-ALLERGAN-1110680US

PATIENT
  Age: 38 Year
  Sex: Female

DRUGS (1)
  1. BOTOX COSMETIC [Suspect]
     Indication: SKIN WRINKLING
     Dosage: 20 UNITS, SINGLE
     Route: 030
     Dates: start: 20110604, end: 20110604

REACTIONS (6)
  - VERTIGO [None]
  - PALPITATIONS [None]
  - ANXIETY [None]
  - DYSPNOEA [None]
  - DIZZINESS [None]
  - HEADACHE [None]
